FAERS Safety Report 5569985-4 (Version None)
Quarter: 2007Q4

REPORT INFORMATION
  Report Type: 
  Country: None (occurrence: None)
  Receive Date: 20071217
  Receipt Date: 20071203
  Transmission Date: 20080405
  Serious: Yes (Death, Hospitalization)
  Sender: FDA-Public Use
  Company Number: GXKR2007DE10351

PATIENT
  Age: 17 Year
  Sex: Male

DRUGS (2)
  1. PREDNISONE [Suspect]
     Indication: NEUTROPENIA
  2. CHEMOTHERAPEUTICS, OTHER (CHEMOTHERAPEUTICS, OTHER) [Concomitant]

REACTIONS (20)
  - ACUTE RESPIRATORY DISTRESS SYNDROME [None]
  - ASPERGILLOSIS [None]
  - BIOPSY SKIN ABNORMAL [None]
  - BLOOD CULTURE POSITIVE [None]
  - BRONCHIAL ULCERATION [None]
  - BRONCHOPULMONARY ASPERGILLOSIS [None]
  - BRONCHOSCOPY ABNORMAL [None]
  - DISEASE PROGRESSION [None]
  - FUNGAL INFECTION [None]
  - INTENSIVE CARE [None]
  - LUNG INFECTION [None]
  - LUNG INFILTRATION [None]
  - MECHANICAL VENTILATION [None]
  - MUCOSAL INFLAMMATION [None]
  - MYALGIA [None]
  - PULMONARY CAVITATION [None]
  - PYREXIA [None]
  - RASH PAPULAR [None]
  - SKIN LESION [None]
  - STAPHYLOCOCCAL INFECTION [None]
